FAERS Safety Report 9319945 (Version 2)
Quarter: 2013Q2

REPORT INFORMATION
  Report Type: Spontaneous
  Country: ES (occurrence: ES)
  Receive Date: 20130530
  Receipt Date: 20130620
  Transmission Date: 20140414
  Serious: No
  Sender: FDA-Public Use
  Company Number: ES-JNJFOC-20130512092

PATIENT
  Age: 43 Year
  Sex: Male
  Weight: 100 kg

DRUGS (2)
  1. STELARA [Suspect]
     Indication: PSORIASIS
     Dosage: APPROXIMATELY 1.5 -2 YEARS AGO
     Route: 058
     Dates: start: 201102, end: 2012
  2. STELARA [Suspect]
     Indication: PSORIASIS
     Route: 058
     Dates: start: 201211

REACTIONS (2)
  - Lymphopenia [Not Recovered/Not Resolved]
  - Weight decreased [Unknown]
